FAERS Safety Report 19426959 (Version 1)
Quarter: 2021Q2

REPORT INFORMATION
  Report Type: Spontaneous
  Country: AU (occurrence: AU)
  Receive Date: 20210617
  Receipt Date: 20210617
  Transmission Date: 20210717
  Serious: Yes (Other)
  Sender: FDA-Public Use
  Company Number: AU-ALKEM LABORATORIES LIMITED-AU-ALKEM-2021-03408

PATIENT
  Sex: Female

DRUGS (1)
  1. SILDENAFIL. [Suspect]
     Active Substance: SILDENAFIL
     Indication: PULMONARY HYPERTENSION
     Dosage: 0.5 MILLIGRAM/KILOGRAM, QID
     Route: 048

REACTIONS (5)
  - Blood creatinine increased [Recovered/Resolved]
  - Neonatal hypotension [Recovered/Resolved]
  - Prerenal failure [Recovered/Resolved]
  - Neonatal anuria [Recovered/Resolved]
  - Lactic acidosis [Recovered/Resolved]
